FAERS Safety Report 4466048-6 (Version None)
Quarter: 2004Q3

REPORT INFORMATION
  Report Type: 
  Country: None (occurrence: None)
  Receive Date: 20040930
  Receipt Date: 20040916
  Transmission Date: 20050211
  Serious: Yes (Other)
  Sender: FDA-Public Use
  Company Number: HQWYE114117SEP04

PATIENT
  Age: 34 Year
  Sex: Male

DRUGS (1)
  1. DIAMOX (ACETAZOLAMIDE, TABLET) LOT NO. :  27125 [Suspect]
     Indication: OPTIC NERVE DISORDER
     Dosage: MONDAY, WEDNESDAY, AND FRIDAY 500MG DAILY, TUESDAY AND THURSDAY 250 MG DAILY
     Route: 048

REACTIONS (5)
  - ASTHENIA [None]
  - DECREASED APPETITE [None]
  - INTENTIONAL MISUSE [None]
  - SELF-MEDICATION [None]
  - VISUAL DISTURBANCE [None]
